FAERS Safety Report 9066909 (Version 1)
Quarter: 2013Q1

REPORT INFORMATION
  Report Type: Spontaneous
  Country: CA (occurrence: CA)
  Receive Date: 20130214
  Receipt Date: 20130214
  Transmission Date: 20140127
  Serious: Yes (Death, Hospitalization, Other)
  Sender: FDA-Public Use
  Company Number: CA-BAXTER-2013BAX004951

PATIENT
  Sex: Male

DRUGS (3)
  1. DIANEAL PD4 SOLUTION WITH 2.5% DEXTROSE AND 2.5 MEQ/L CALCIUM [Suspect]
     Indication: RENAL FAILURE
     Route: 033
     Dates: start: 20111216
  2. DIANEAL PD4 SOLUTION WITH 4.25% DEXTROSE AND 2.5 MEQ/L CALCIUM [Suspect]
     Indication: RENAL FAILURE
     Route: 033
     Dates: start: 20111216
  3. EXTRANEAL [Suspect]
     Indication: RENAL FAILURE
     Route: 033
     Dates: start: 20111216

REACTIONS (6)
  - Death [Fatal]
  - Skin infection [Unknown]
  - Diabetic complication [Unknown]
  - Diabetic complication [Unknown]
  - Disease complication [Unknown]
  - Malaise [Unknown]
